FAERS Safety Report 15547048 (Version 1)
Quarter: 2018Q4

REPORT INFORMATION
  Report Type: Spontaneous
  Country: FR (occurrence: FR)
  Receive Date: 20181024
  Receipt Date: 20181024
  Transmission Date: 20190205
  Serious: Yes (Hospitalization)
  Sender: FDA-Public Use
  Company Number: FR-JNJFOC-20181029794

PATIENT
  Age: 79 Year
  Sex: Male

DRUGS (11)
  1. MABTHERA [Suspect]
     Active Substance: RITUXIMAB
     Indication: CHRONIC MYELOID LEUKAEMIA
     Route: 065
     Dates: start: 2012, end: 2013
  2. TAHOR [Concomitant]
     Active Substance: ATORVASTATIN CALCIUM
  3. VELMETIA [Concomitant]
     Active Substance: METFORMIN\SITAGLIPTIN
  4. FLUDARA [Suspect]
     Active Substance: FLUDARABINE PHOSPHATE
     Indication: CHRONIC MYELOID LEUKAEMIA
     Route: 048
     Dates: start: 2012, end: 2013
  5. ENDOXAN [Suspect]
     Active Substance: CYCLOPHOSPHAMIDE
     Indication: CHRONIC MYELOID LEUKAEMIA
     Route: 048
     Dates: start: 2012, end: 2013
  6. DUOPLAVIN [Concomitant]
     Active Substance: ASPIRIN\CLOPIDOGREL
  7. BACTRIM [Concomitant]
     Active Substance: SULFAMETHOXAZOLE\TRIMETHOPRIM
  8. IMBRUVICA [Suspect]
     Active Substance: IBRUTINIB
     Indication: CHRONIC MYELOID LEUKAEMIA
     Route: 048
     Dates: start: 20170513, end: 20180928
  9. COVERAM [Concomitant]
     Active Substance: AMLODIPINE\PERINDOPRIL
  10. NIVESTIM [Concomitant]
     Active Substance: FILGRASTIM
  11. GLICLAZIDE [Concomitant]
     Active Substance: GLICLAZIDE

REACTIONS (2)
  - Acute leukaemia [Not Recovered/Not Resolved]
  - Myelodysplastic syndrome [Not Recovered/Not Resolved]

NARRATIVE: CASE EVENT DATE: 20180928
